FAERS Safety Report 8122682-3 (Version None)
Quarter: 2012Q1

REPORT INFORMATION
  Report Type: 
  Country: None (occurrence: None)
  Receive Date: 20120208
  Receipt Date: 20120130
  Transmission Date: 20120608
  Serious: Yes (Hospitalization, Other)
  Sender: FDA-Public Use
  Company Number: US-BIOGENIDEC-2012BI003520

PATIENT
  Age: 45 Year
  Sex: Female

DRUGS (2)
  1. AVONEX [Suspect]
     Indication: MULTIPLE SCLEROSIS
     Route: 030
     Dates: start: 20020112, end: 20111101
  2. AVONEX [Suspect]
     Route: 030
     Dates: start: 20111231

REACTIONS (3)
  - MENINGIOMA [None]
  - INTRACRANIAL ANEURYSM [None]
  - MULTIPLE SCLEROSIS RELAPSE [None]
